FAERS Safety Report 7382925-0 (Version None)
Quarter: 2011Q1

REPORT INFORMATION
  Report Type: 
  Country: None (occurrence: None)
  Receive Date: 20110330
  Receipt Date: 20101007
  Transmission Date: 20110831
  Serious: Yes (Other)
  Sender: FDA-Public Use
  Company Number: US-BAYER-201018599NA

PATIENT
  Sex: Female
  Weight: 91.156 kg

DRUGS (15)
  1. HYOSCYAMINE [Concomitant]
     Dosage: UNK
     Dates: start: 20060818
  2. EPIPEN [Concomitant]
     Dosage: UNK UNK, PRN
     Dates: start: 20060810
  3. YAZ [Suspect]
     Indication: CONTRACEPTION
     Dosage: AS USED DOSE: UNK
     Route: 048
     Dates: start: 20060101, end: 20070315
  4. CETIRIZINE HCL [Concomitant]
     Dosage: UNK
     Dates: start: 20060613
  5. BENTYL [Concomitant]
  6. VICODIN [Concomitant]
  7. DICYCLOMINE [Concomitant]
     Dosage: UNK
     Dates: start: 20061003
  8. NAPROXEN [Concomitant]
  9. ACIPHEX [Concomitant]
  10. REGLAN [Concomitant]
  11. YASMIN [Suspect]
     Indication: PRODUCT USED FOR UNKNOWN INDICATION
     Dosage: AS USED DOSE: UNK
     Route: 048
     Dates: start: 20060101, end: 20070315
  12. AMITRIPTYLINE HCL [Concomitant]
     Dosage: UNK
     Dates: start: 20060809
  13. KETOROLAC [Concomitant]
     Dosage: UNK
     Dates: start: 20060811
  14. COMPAZINE [Concomitant]
  15. GUAIFENEX G [Concomitant]
     Dosage: UNK
     Dates: start: 20060905

REACTIONS (10)
  - PROCEDURAL PAIN [None]
  - GALLBLADDER CHOLESTEROLOSIS [None]
  - VOMITING [None]
  - NAUSEA [None]
  - CHOLECYSTITIS CHRONIC [None]
  - ABDOMINAL PAIN UPPER [None]
  - DYSPEPSIA [None]
  - WEIGHT DECREASED [None]
  - BILIARY DYSKINESIA [None]
  - CHOLELITHIASIS [None]
